FAERS Safety Report 6536439-8 (Version None)
Quarter: 2010Q1

REPORT INFORMATION
  Report Type: 
  Country: None (occurrence: None)
  Receive Date: 20100106
  Receipt Date: 20100104
  Transmission Date: 20100710
  Serious: Yes (Hospitalization)
  Sender: FDA-Public Use
  Company Number: 2009003922

PATIENT
  Age: 71 Year
  Sex: Male

DRUGS (5)
  1. ERLOTINIB HYDROCHLORIDE [Suspect]
     Indication: MYELODYSPLASTIC SYNDROME
     Dosage: (150 MG), ORAL
     Route: 048
     Dates: start: 20091130
  2. METFORMIN HCL [Concomitant]
  3. HUMULIN (NOVOLIN 20/80) [Concomitant]
  4. TARKA (UDRAMIL) [Concomitant]
  5. VYTORIN [Concomitant]

REACTIONS (21)
  - ARTERIAL THROMBOSIS LIMB [None]
  - BACTERIAL INFECTION [None]
  - BLOOD BILIRUBIN INCREASED [None]
  - BLOOD GLUCOSE INCREASED [None]
  - BLOOD POTASSIUM INCREASED [None]
  - CHOLELITHIASIS [None]
  - COUGH [None]
  - DECREASED APPETITE [None]
  - DEVICE RELATED INFECTION [None]
  - DYSPNOEA [None]
  - FATIGUE [None]
  - HAEMATOCRIT DECREASED [None]
  - HAEMOGLOBIN DECREASED [None]
  - PLATELET COUNT DECREASED [None]
  - PNEUMONIA [None]
  - PROTEIN TOTAL INCREASED [None]
  - SELF-MEDICATION [None]
  - SEPSIS [None]
  - SINUSITIS [None]
  - STAPHYLOCOCCAL INFECTION [None]
  - TREATMENT NONCOMPLIANCE [None]
